FAERS Safety Report 9138812 (Version 1)
Quarter: 2013Q1

REPORT INFORMATION
  Report Type: Spontaneous
  Country: US (occurrence: US)
  Receive Date: 20130305
  Receipt Date: 20130305
  Transmission Date: 20140127
  Serious: Yes (Hospitalization)
  Sender: FDA-Public Use
  Company Number: US-ENDO PHARMACEUTICALS INC.-PERC20110112

PATIENT
  Age: 54 Year
  Sex: Female

DRUGS (4)
  1. PERCOCET [Suspect]
     Indication: PRODUCT USED FOR UNKNOWN INDICATION
     Dosage: UNK
     Route: 048
  2. AMPYRA [Suspect]
     Indication: GAIT DISTURBANCE
     Dosage: 10 MG
     Route: 048
     Dates: start: 201004, end: 201110
  3. AVONEX [Suspect]
     Indication: MULTIPLE SCLEROSIS
     Dosage: UNK
     Route: 030
  4. AVONEX [Suspect]
     Route: 030
     Dates: start: 201004, end: 201110

REACTIONS (2)
  - Liver injury [Recovered/Resolved]
  - Accidental overdose [Recovered/Resolved]
